FAERS Safety Report 12644946 (Version 2)
Quarter: 2016Q3

REPORT INFORMATION
  Report Type: Spontaneous
  Country: US (occurrence: US)
  Receive Date: 20160811
  Receipt Date: 20160908
  Transmission Date: 20161109
  Serious: No
  Sender: FDA-Public Use
  Company Number: US-PFIZER INC-2016376682

PATIENT
  Age: 62 Year
  Sex: Female

DRUGS (1)
  1. XELJANZ [Suspect]
     Active Substance: TOFACITINIB CITRATE
     Indication: ESSENTIAL HYPERTENSION
     Dosage: 5 MG, UNK

REACTIONS (4)
  - Drug ineffective for unapproved indication [Unknown]
  - Arthropathy [Unknown]
  - Dizziness [Unknown]
  - Dermatitis [Unknown]

NARRATIVE: CASE EVENT DATE: 20160804
